FAERS Safety Report 9159490 (Version 1)
Quarter: 2013Q1

REPORT INFORMATION
  Report Type: Spontaneous
  Country: US (occurrence: None)
  Receive Date: 20130215
  Receipt Date: 20130215
  Transmission Date: 20140127
  Serious: Yes (Hospitalization)
  Sender: FDA-Public Use
  Company Number: 145262

PATIENT
  Sex: Female
  Weight: 64 kg

DRUGS (1)
  1. LEUCOVORIN CALCIUM FOR INJ. 50MG - BEDFORD LABS, INC. [Suspect]
     Indication: COLORECTAL CANCER METASTATIC
     Route: 042
     Dates: start: 20120626, end: 20121203

REACTIONS (1)
  - Bile duct obstruction [None]
